FAERS Safety Report 18715792 (Version 1)
Quarter: 2021Q1

REPORT INFORMATION
  Report Type: Spontaneous
  Country: CN (occurrence: CN)
  Receive Date: 20210108
  Receipt Date: 20210108
  Transmission Date: 20210419
  Serious: Yes (Other)
  Sender: FDA-Public Use
  Company Number: CN-JNJFOC-20210109644

PATIENT
  Age: 79 Year
  Sex: Male
  Weight: 60 kg

DRUGS (2)
  1. RIVAROXABAN [Suspect]
     Active Substance: RIVAROXABAN
     Indication: ANTICOAGULANT THERAPY
     Dosage: 10 MG, QD
     Route: 048
     Dates: start: 20201212
  2. RIVAROXABAN [Suspect]
     Active Substance: RIVAROXABAN
     Indication: DEEP VEIN THROMBOSIS
     Dosage: 15 MG, BID
     Route: 048
     Dates: start: 20201203, end: 20201207

REACTIONS (6)
  - Haemoglobin decreased [Recovered/Resolved]
  - Muscle haemorrhage [Recovered/Resolved]
  - Dizziness [Recovered/Resolved]
  - Asthenia [Recovered/Resolved]
  - Pallor [Recovered/Resolved]
  - Red blood cell count decreased [Recovered/Resolved]

NARRATIVE: CASE EVENT DATE: 20201207
